FAERS Safety Report 6699397-1 (Version None)
Quarter: 2010Q2

REPORT INFORMATION
  Report Type: 
  Country: None (occurrence: None)
  Receive Date: 20100426
  Receipt Date: 20100415
  Transmission Date: 20101027
  Serious: Yes (Hospitalization)
  Sender: FDA-Public Use
  Company Number: 2010AL002272

PATIENT
  Age: 72 Year
  Sex: Male
  Weight: 122 kg

DRUGS (10)
  1. HYDROCHLOROTHIAZIDE TABLETS                      (AELLC) [Suspect]
     Indication: ESSENTIAL HYPERTENSION
     Dosage: 12.5 MG; QD; PO
     Route: 048
     Dates: start: 20090415, end: 20090502
  2. ALTACE [Concomitant]
  3. DOXYCYCLINE [Concomitant]
  4. NIACIN [Concomitant]
  5. PREVACID [Concomitant]
  6. ASPIRIN [Concomitant]
  7. MULTI-VITAMINS [Concomitant]
  8. TYLENOL PM [Concomitant]
  9. TYLENOL (CAPLET) [Concomitant]
  10. TAK-491CLD [Concomitant]

REACTIONS (7)
  - ALANINE AMINOTRANSFERASE INCREASED [None]
  - ANAEMIA [None]
  - ARTERIOSCLEROSIS [None]
  - ASPARTATE AMINOTRANSFERASE INCREASED [None]
  - BLOOD PRESSURE SYSTOLIC INCREASED [None]
  - CAROTID ARTERY STENOSIS [None]
  - CEREBRAL INFARCTION [None]
